FAERS Safety Report 13040307 (Version 3)
Quarter: 2017Q1

REPORT INFORMATION
  Report Type: Report from Study
  Country: US (occurrence: US)
  Receive Date: 20161219
  Receipt Date: 20170209
  Transmission Date: 20170428
  Serious: Yes (Hospitalization)
  Sender: FDA-Public Use
  Company Number: US-MALLINCKRODT-T201606357

PATIENT
  Age: 53 Year
  Sex: Male
  Weight: 95 kg

DRUGS (3)
  1. REPOSITORY CORTICOTROPIN INJECTION [Suspect]
     Active Substance: CORTICOTROPIN
     Indication: NEPHROPATHY
     Dosage: 80 UNITS ALTRENATING WITH 40 UNITS EVERY OTHER DAY
     Route: 058
     Dates: start: 201611
  2. REPOSITORY CORTICOTROPIN INJECTION [Suspect]
     Active Substance: CORTICOTROPIN
     Dosage: 40 UNITS TWICE WEEKLY FOR 2 WEEKS
     Route: 058
     Dates: start: 201611, end: 20161204
  3. REPOSITORY CORTICOTROPIN INJECTION [Suspect]
     Active Substance: CORTICOTROPIN
     Indication: IGA NEPHROPATHY
     Dosage: 80 UNITS / 1 ML, 2 TIMES PER WEEK, SUN + WED.
     Route: 058
     Dates: start: 20160803

REACTIONS (2)
  - Vomiting [Not Recovered/Not Resolved]
  - Nausea [Recovered/Resolved]

NARRATIVE: CASE EVENT DATE: 201610
